FAERS Safety Report 7993091-2 (Version None)
Quarter: 2011Q4

REPORT INFORMATION
  Report Type: 
  Country: None (occurrence: None)
  Receive Date: 20111219
  Receipt Date: 20110520
  Transmission Date: 20120403
  Serious: No
  Sender: FDA-Public Use
  Company Number: US-ASTRAZENECA-2011SE31502

PATIENT
  Age: 79 Year
  Sex: Female

DRUGS (4)
  1. POTASSIUM CHLORIDE [Concomitant]
  2. CRESTOR [Suspect]
     Indication: HYPERCHOLESTEROLAEMIA
     Route: 048
     Dates: start: 20110401
  3. MICARDIS HCT [Concomitant]
     Indication: HYPERTENSION
  4. METOPROLOL [Concomitant]
     Indication: HYPERTENSION

REACTIONS (8)
  - GINGIVAL PAIN [None]
  - OESOPHAGEAL PAIN [None]
  - GASTRIC INFECTION [None]
  - ABDOMINAL PAIN UPPER [None]
  - THROAT IRRITATION [None]
  - TINNITUS [None]
  - CHEST DISCOMFORT [None]
  - ORAL DISCOMFORT [None]
